FAERS Safety Report 21983518 (Version 1)
Quarter: 2023Q1

REPORT INFORMATION
  Report Type: Spontaneous
  Country: FR (occurrence: FR)
  Receive Date: 20230213
  Receipt Date: 20230213
  Transmission Date: 20230417
  Serious: Yes (Death)
  Sender: FDA-Public Use
  Company Number: FR-SUN PHARMACEUTICAL INDUSTRIES LTD-2023RR-377931

PATIENT
  Age: 78 Year
  Sex: Male
  Weight: 67 kg

DRUGS (9)
  1. QUETIAPINE [Suspect]
     Active Substance: QUETIAPINE
     Indication: Dementia with Lewy bodies
     Dosage: 50 MILLIGRAM, DAILY
     Route: 048
     Dates: start: 20221110, end: 20221110
  2. KARDEGIC [Suspect]
     Active Substance: ASPIRIN DL-LYSINE
     Indication: Cardiovascular event prophylaxis
     Dosage: 75 MILLIGRAM, DAILY
     Route: 048
     Dates: start: 2014, end: 20221110
  3. PRAZEPAM [Suspect]
     Active Substance: PRAZEPAM
     Indication: Dementia with Lewy bodies
     Dosage: 10 MILLIGRAM, DAILY
     Route: 048
     Dates: start: 20221110, end: 20221110
  4. VASTEN 40 mg, comprime [Concomitant]
     Indication: Cardiovascular event prophylaxis
     Dosage: 40 MILLIGRAM, DAILY
     Route: 048
  5. FERO-GRAD VITAMINE C 500, comprime enrobe [Concomitant]
     Indication: Mineral supplementation
     Dosage: 1 DOSAGE FORM
     Route: 048
  6. ALLOPURINOL [Concomitant]
     Active Substance: ALLOPURINOL
     Indication: Hyperuricaemia
     Dosage: 100 MILLIGRAM, DAILY
     Route: 048
  7. AVLOCARDYL 40 mg, comprime secable [Concomitant]
     Indication: Essential tremor
     Dosage: 80 MILLIGRAM, DAILY
     Route: 048
     Dates: start: 20190829, end: 20221227
  8. URSODIOL [Concomitant]
     Active Substance: URSODIOL
     Indication: Cholangitis sclerosing
     Dosage: 500 MILLIGRAM, BID
     Route: 048
  9. AMLODIPINE BESYLATE [Concomitant]
     Active Substance: AMLODIPINE BESYLATE
     Indication: Hypertension
     Dosage: 10 MILLIGRAM, DAILY
     Route: 048

REACTIONS (1)
  - Cerebral haematoma [Fatal]

NARRATIVE: CASE EVENT DATE: 20221110
